FAERS Safety Report 24718863 (Version 1)
Quarter: 2024Q4

REPORT INFORMATION
  Report Type: Spontaneous
  Country: US (occurrence: US)
  Receive Date: 20241210
  Receipt Date: 20241210
  Transmission Date: 20250114
  Serious: Yes (Death)
  Sender: SYMOGEN
  Company Number: US-PARTNER THERAPEUTICS-2024PTX00025

PATIENT
  Age: 72 Year
  Sex: Male

DRUGS (1)
  1. LEUKINE [Suspect]
     Active Substance: SARGRAMOSTIM
     Indication: Acute myeloid leukaemia
     Dosage: 2 ML (500 ?G), UNDER THE SKIN DAILY (2 VIALS PER DOSE)
     Route: 058

REACTIONS (1)
  - Death [Fatal]

NARRATIVE: CASE EVENT DATE: 20240522
